FAERS Safety Report 6190803-8 (Version None)
Quarter: 2009Q2

REPORT INFORMATION
  Report Type: 
  Country: None (occurrence: None)
  Receive Date: 20090514
  Receipt Date: 20090506
  Transmission Date: 20091009
  Serious: Yes (Other)
  Sender: FDA-Public Use
  Company Number: PHHY2009DE08348

PATIENT
  Sex: Female

DRUGS (2)
  1. GLEEVEC [Suspect]
     Indication: CHRONIC MYELOID LEUKAEMIA
     Dosage: 400 MG, QD
     Route: 048
     Dates: start: 20090119
  2. LOPERAMIDE HCL [Concomitant]
     Indication: DIARRHOEA

REACTIONS (3)
  - DIARRHOEA [None]
  - INTESTINAL RESECTION [None]
  - MUSCLE SPASMS [None]
